FAERS Safety Report 10045856 (Version 1)
Quarter: 2014Q1

REPORT INFORMATION
  Report Type: Report from Study
  Country: US (occurrence: US)
  Receive Date: 20140329
  Receipt Date: 20140329
  Transmission Date: 20141002
  Serious: Yes (Hospitalization, Other)
  Sender: FDA-Public Use
  Company Number: US-ABBVIE-14K-163-1216512-00

PATIENT
  Age: 74 Year
  Sex: Male

DRUGS (1)
  1. CREON [Suspect]
     Indication: PANCREATIC DISORDER

REACTIONS (3)
  - Coronary artery occlusion [Unknown]
  - Coronary artery occlusion [Unknown]
  - Pneumonia [Unknown]
